FAERS Safety Report 9714228 (Version 2)
Quarter: 2013Q4

REPORT INFORMATION
  Report Type: Spontaneous
  Country: US (occurrence: US)
  Receive Date: 20131126
  Receipt Date: 20131126
  Transmission Date: 20140711
  Serious: Yes (Disabling, Other)
  Sender: FDA-Public Use
  Company Number: US-GILEAD-2008-0019198

PATIENT
  Age: 52 Year
  Sex: Male
  Weight: 104.33 kg

DRUGS (10)
  1. LETAIRIS [Suspect]
     Indication: PULMONARY HYPERTENSION
     Route: 048
     Dates: start: 20081112, end: 20081125
  2. DIGOXIN [Concomitant]
     Indication: ARRHYTHMIA
  3. FUROSEMIDE [Concomitant]
     Indication: HYPERTENSION
  4. LISINOPRIL [Concomitant]
     Indication: HYPERTENSION
  5. AFRIN [Concomitant]
     Indication: SINUSITIS
  6. BENADRYL [Concomitant]
     Indication: ANAPHYLACTIC REACTION
  7. EPINEPHRINE [Concomitant]
     Indication: ANAPHYLACTIC REACTION
  8. METFORMIN [Concomitant]
     Indication: DIABETES MELLITUS
  9. GLUCOSAMINE CHON [Concomitant]
     Indication: ARTHRITIS
  10. KCL [Concomitant]
     Indication: DIURETIC THERAPY

REACTIONS (2)
  - Oedema peripheral [Recovered/Resolved]
  - Oedema [Unknown]
